FAERS Safety Report 10079019 (Version 2)
Quarter: 2014Q2

REPORT INFORMATION
  Report Type: Spontaneous
  Country: US (occurrence: US)
  Receive Date: 20140415
  Receipt Date: 20140513
  Transmission Date: 20141212
  Serious: No
  Sender: FDA-Public Use
  Company Number: US-B.I. PHARMACEUTICALS,INC./RIDGEFIELD-2014-BI-14861BP

PATIENT
  Age: 70 Year
  Sex: Female
  Weight: 77 kg

DRUGS (19)
  1. COMBIVENT [Suspect]
     Indication: CHRONIC OBSTRUCTIVE PULMONARY DISEASE
     Dosage: STRENGTH: 20 MCG / 100 MCG
     Route: 055
     Dates: start: 201401
  2. ALPHAGAN EYE DROPS [Concomitant]
     Indication: GLAUCOMA
     Route: 050
  3. LATANOPROST  EYE DROP [Concomitant]
     Indication: GLAUCOMA
     Route: 050
  4. FLONASE NASAL  SPRAY [Concomitant]
     Indication: HYPERSENSITIVITY
     Dosage: FORMULATION: NASAL SPRAY
     Route: 045
  5. PANTANASE NASAL SPRAY [Concomitant]
     Indication: HYPERSENSITIVITY
     Dosage: FORMULATION: NASAL SPRAY
     Route: 045
  6. WELLBUTRIN [Concomitant]
     Indication: DEPRESSION
     Dosage: 100 MG
     Route: 048
  7. TRENTAL [Concomitant]
     Indication: ANGIOPATHY
     Dosage: 1200 MG
     Route: 048
  8. DEXILANT [Concomitant]
     Indication: GASTROOESOPHAGEAL REFLUX DISEASE
     Dosage: 600 MG
     Route: 048
  9. CRESTOR [Concomitant]
     Indication: BLOOD CHOLESTEROL INCREASED
     Dosage: 10 MG
     Route: 048
  10. CELEBREX [Concomitant]
     Indication: ARTHRITIS
     Dosage: 200 MG
     Route: 048
  11. ZYRTEC [Concomitant]
     Indication: ASTHMA
     Dosage: 10 MG
     Route: 048
  12. SINGULAIR [Concomitant]
     Indication: ASTHMA
     Dosage: 10 MG
     Route: 048
  13. SYMBICORT [Concomitant]
     Indication: ASTHMA
     Dosage: FORMULATION: INHALATION AEROSOL
     Route: 055
  14. METFORMIN [Concomitant]
     Indication: DIABETES MELLITUS
     Dosage: 1000 MG
     Route: 048
  15. THERALITH XR [Concomitant]
     Indication: NEPHROLITHIASIS
     Route: 048
  16. ASPIRIN [Concomitant]
     Indication: CARDIAC MURMUR
     Dosage: 81 MG
     Route: 048
  17. MULTIVITAMIN [Concomitant]
     Route: 048
  18. FISH OIL [Concomitant]
     Dosage: 2000 U
     Route: 048
  19. CALCIUM + D [Concomitant]
     Dosage: 3000 MG
     Route: 048

REACTIONS (4)
  - Chest discomfort [Recovered/Resolved]
  - Wheezing [Recovered/Resolved]
  - Dyspnoea [Recovered/Resolved]
  - Product quality issue [Recovered/Resolved]
